FAERS Safety Report 25996214 (Version 1)
Quarter: 2025Q4

REPORT INFORMATION
  Report Type: Spontaneous
  Country: US (occurrence: US)
  Receive Date: 20251104
  Receipt Date: 20251104
  Transmission Date: 20260118
  Serious: Yes (Hospitalization, Other)
  Sender: CB FLEET
  Company Number: US-PRESTIGE-202510-US-003550

PATIENT
  Age: 78 Year
  Sex: Male

DRUGS (7)
  1. FLEET ENEMA [Suspect]
     Active Substance: SODIUM PHOSPHATE, DIBASIC\SODIUM PHOSPHATE, MONOBASIC
     Indication: Constipation
     Dosage: I HAD BEEN USING THEM 2 TIMES A WEEK AND THEN SOMETIMES MAYBE ONCE EVERY 10-12 DAYS.
     Route: 054
  2. METFORMIN HYDROCHLORIDE [Concomitant]
     Active Substance: METFORMIN HYDROCHLORIDE
  3. ACYCLOVIR [Concomitant]
     Active Substance: ACYCLOVIR
  4. ASPIRIN [Concomitant]
     Active Substance: ASPIRIN
  5. MORNIFLUMATE [Concomitant]
     Active Substance: MORNIFLUMATE
  6. LASIX [Concomitant]
     Active Substance: FUROSEMIDE
  7. VITAMIN B12 [Concomitant]
     Active Substance: CYANOCOBALAMIN

REACTIONS (4)
  - Blood electrolytes decreased [Recovered/Resolved]
  - Acute kidney injury [Unknown]
  - Urinary retention [Unknown]
  - Product administered to patient of inappropriate age [None]
